FAERS Safety Report 6336443-9 (Version None)
Quarter: 2009Q3

REPORT INFORMATION
  Report Type: 
  Country: None (occurrence: None)
  Receive Date: 20090901
  Receipt Date: 20090821
  Transmission Date: 20100115
  Serious: Yes (Hospitalization, Other)
  Sender: FDA-Public Use
  Company Number: US-BAYER-200913270BCC

PATIENT
  Age: 88 Year
  Sex: Female
  Weight: 44 kg

DRUGS (14)
  1. ASPIRIN [Suspect]
     Indication: POSTOPERATIVE CARE
     Route: 048
     Dates: end: 20090731
  2. ASPIRIN [Suspect]
     Route: 065
     Dates: end: 20080904
  3. PLAVIX [Suspect]
     Indication: TRANSIENT ISCHAEMIC ATTACK
     Route: 048
     Dates: start: 20080501
  4. NORVASC [Concomitant]
     Route: 065
     Dates: end: 20090401
  5. TOPROL-XL [Concomitant]
     Route: 065
  6. LISINOPRIL [Concomitant]
     Route: 065
  7. LORAZEPAM [Concomitant]
     Route: 065
  8. CALCIUM [Concomitant]
     Route: 065
  9. VITAMINS [Concomitant]
     Route: 065
  10. CHONDROITIN SULFATE SODIUM [Concomitant]
     Route: 065
  11. GLUCOSAMINE [Concomitant]
     Route: 065
  12. VITAMIN D [Concomitant]
     Route: 065
  13. ZANTAC [Concomitant]
     Route: 065
  14. VITAMIN-MINERAL COMPOUND TAB [Concomitant]
     Route: 065

REACTIONS (20)
  - ANAEMIA [None]
  - ANORECTAL DISCOMFORT [None]
  - BLOOD PRESSURE INCREASED [None]
  - CONTUSION [None]
  - DUODENAL ULCER [None]
  - DYSPEPSIA [None]
  - GASTROOESOPHAGEAL REFLUX DISEASE [None]
  - GINGIVAL DISORDER [None]
  - HAEMATOCHEZIA [None]
  - HEADACHE [None]
  - HEART RATE INCREASED [None]
  - IMPLANT SITE HAEMORRHAGE [None]
  - INCISION SITE HAEMATOMA [None]
  - INCISION SITE HAEMORRHAGE [None]
  - INCISION SITE OEDEMA [None]
  - LOSS OF CONSCIOUSNESS [None]
  - MALAISE [None]
  - MOUTH ULCERATION [None]
  - NAUSEA [None]
  - PAIN IN EXTREMITY [None]
